FAERS Safety Report 15273235 (Version 1)
Quarter: 2018Q3

REPORT INFORMATION
  Report Type: Report from Study
  Country: US (occurrence: US)
  Receive Date: 20180813
  Receipt Date: 20180813
  Transmission Date: 20181010
  Serious: Yes (Hospitalization)
  Sender: FDA-Public Use
  Company Number: US-ACTELION-A-US2018-177030

PATIENT
  Age: 2 Year
  Sex: Male

DRUGS (3)
  1. ZAVESCA [Suspect]
     Active Substance: MIGLUSTAT
     Indication: GAUCHER^S DISEASE
     Dosage: 100 MG, QD
     Route: 048
     Dates: start: 20161003
  2. MULTIVITAMIN [Concomitant]
     Active Substance: VITAMINS
     Dosage: 0.83 MG, BID
     Route: 048
     Dates: start: 20160930
  3. SIMETHICONE (DIMETHICONE) [Concomitant]
     Active Substance: DIMETHICONE
     Dosage: 8.3 ML, BID
     Route: 048
     Dates: start: 20160930

REACTIONS (2)
  - Viral infection [Unknown]
  - Bacterial infection [Unknown]

NARRATIVE: CASE EVENT DATE: 20180720
